FAERS Safety Report 21405542 (Version 1)
Quarter: 2022Q4

REPORT INFORMATION
  Report Type: Spontaneous
  Country: US (occurrence: US)
  Receive Date: 20221004
  Receipt Date: 20221004
  Transmission Date: 20230113
  Serious: Yes (Hospitalization)
  Sender: FDA-Public Use
  Company Number: US-LP PHARMA-2022PRN00357

PATIENT
  Age: 39 Year
  Sex: Female

DRUGS (8)
  1. CLONIDINE HYDROCHLORIDE [Suspect]
     Active Substance: CLONIDINE HYDROCHLORIDE
     Indication: Anxiety
     Dosage: 0.1 MG, 3X/DAY
     Route: 065
  2. BUPROPION [Suspect]
     Active Substance: BUPROPION
     Dosage: 450 MG, 1X/DAY
     Route: 065
  3. DESVENLAFAXINE [Suspect]
     Active Substance: DESVENLAFAXINE
     Dosage: 200 MG, 1X/DAY
     Route: 065
  4. YOHIMBINE [Suspect]
     Active Substance: YOHIMBINE
     Indication: Libido disorder
     Dosage: 1 TABLETS
     Route: 065
  5. BUPRENORPHINE HYDROCHLORIDE\NALOXONE [Concomitant]
     Active Substance: BUPRENORPHINE HYDROCHLORIDE\NALOXONE
     Dosage: 1.5 FILM, 1X/DAY
     Route: 065
  6. LISDEXAMFETAMINE [Concomitant]
     Active Substance: LISDEXAMFETAMINE
     Dosage: 60 MG EVERY MORNING, 40 MG AT NOON
     Route: 065
  7. TRAZODONE [Concomitant]
     Active Substance: TRAZODONE HYDROCHLORIDE
     Dosage: 100 MG, 1X/DAY
     Route: 065
  8. LEVONORGESTREL [Concomitant]
     Active Substance: LEVONORGESTREL
     Dosage: VIA IUD
     Route: 015

REACTIONS (3)
  - Haemorrhage intracranial [Recovered/Resolved with Sequelae]
  - Hypertensive emergency [Recovered/Resolved]
  - Drug interaction [Recovered/Resolved]
